FAERS Safety Report 20003843 (Version 2)
Quarter: 2021Q4

REPORT INFORMATION
  Report Type: Report from Study
  Country: US (occurrence: US)
  Receive Date: 20211027
  Receipt Date: 20211029
  Transmission Date: 20220303
  Serious: Yes (Death)
  Sender: FDA-Public Use
  Company Number: US-PFIZER INC-202101409831

PATIENT
  Age: 40 Year
  Sex: Male
  Weight: 95.24 kg

DRUGS (2)
  1. MEKTOVI [Suspect]
     Active Substance: BINIMETINIB
     Indication: Malignant melanoma
     Dosage: 45 MG, 2X/DAY,(3 (15 MG) TABLETS EVERY 12 HOURS)
     Route: 048
     Dates: start: 202104
  2. BRAFTOVI [Suspect]
     Active Substance: ENCORAFENIB
     Indication: Malignant melanoma
     Dosage: 450 MG, DAILY (6 (75 MG) CAPSULES DAILY)
     Route: 048
     Dates: start: 202104

REACTIONS (1)
  - Death [Fatal]
